FAERS Safety Report 17765180 (Version 1)
Quarter: 2020Q2

REPORT INFORMATION
  Report Type: Spontaneous
  Country: US (occurrence: US)
  Receive Date: 20200508
  Receipt Date: 20200508
  Transmission Date: 20200714
  Serious: Yes (Death)
  Sender: FDA-Public Use
  Company Number: None

PATIENT
  Age: 58 Year
  Sex: Male
  Weight: 68.04 kg

DRUGS (31)
  1. LORAZEPAM. [Concomitant]
     Active Substance: LORAZEPAM
  2. VENOFER [Concomitant]
     Active Substance: IRON SUCROSE
  3. BUMETANIDE. [Concomitant]
     Active Substance: BUMETANIDE
  4. PROPOFOL. [Concomitant]
     Active Substance: PROPOFOL
  5. ZOFRAN [Concomitant]
     Active Substance: ONDANSETRON HYDROCHLORIDE
  6. VERSED [Concomitant]
     Active Substance: MIDAZOLAM HYDROCHLORIDE
  7. KAYEXALATE [Concomitant]
     Active Substance: SODIUM POLYSTYRENE SULFONATE
  8. SUCCINYLCHOLINE [Concomitant]
     Active Substance: SUCCINYLCHOLINE
  9. ASCORBIC ACID. [Concomitant]
     Active Substance: ASCORBIC ACID
  10. PROTONIX [Concomitant]
     Active Substance: PANTOPRAZOLE SODIUM
  11. NOREPINEPHRINE. [Concomitant]
     Active Substance: NOREPINEPHRINE
  12. BENADRYL [Concomitant]
     Active Substance: DIPHENHYDRAMINE HYDROCHLORIDE
  13. ZINC. [Concomitant]
     Active Substance: ZINC
  14. ETOMIDATE. [Concomitant]
     Active Substance: ETOMIDATE
  15. PROPOFOL. [Concomitant]
     Active Substance: PROPOFOL
  16. ZOSYN [Concomitant]
     Active Substance: PIPERACILLIN SODIUM\TAZOBACTAM SODIUM
  17. AZITHROMYCIN ANHYDROUS. [Concomitant]
     Active Substance: AZITHROMYCIN ANHYDROUS
  18. KPHOS [Concomitant]
  19. CEFEPIME [Concomitant]
     Active Substance: CEFEPIME HYDROCHLORIDE
  20. SODIUM CHLORIDE 0.9% [Concomitant]
     Active Substance: SODIUM CHLORIDE
  21. DEXTROSE, UNSPECIFIED FORM. [Concomitant]
     Active Substance: DEXTROSE, UNSPECIFIED FORM
  22. ACETYLCYSTEINE. [Concomitant]
     Active Substance: ACETYLCYSTEINE
  23. INSULIN REGULAR [Concomitant]
     Active Substance: INSULIN NOS
  24. MAGNESIUM HYDROXIDE. [Concomitant]
     Active Substance: MAGNESIUM HYDROXIDE
  25. REGLAN [Concomitant]
     Active Substance: METOCLOPRAMIDE HYDROCHLORIDE
  26. HYDROXYCHLOROQUINE SULFATE TABLET [Suspect]
     Active Substance: HYDROXYCHLOROQUINE SULFATE
     Indication: COVID-19 TREATMENT
     Route: 048
     Dates: start: 20200423, end: 20200427
  27. ENOXAPARIN [Concomitant]
     Active Substance: ENOXAPARIN
  28. MORPHINE [Concomitant]
     Active Substance: MORPHINE
  29. CALCIUM GLUCONATE. [Concomitant]
     Active Substance: CALCIUM GLUCONATE
  30. 1/2NS [Concomitant]
  31. ACETAMINOPHEN. [Concomitant]
     Active Substance: ACETAMINOPHEN

REACTIONS (1)
  - SARS-CoV-2 test positive [None]

NARRATIVE: CASE EVENT DATE: 20200502
